FAERS Safety Report 9011089 (Version 2)
Quarter: 2013Q1

REPORT INFORMATION
  Report Type: Spontaneous
  Country: US (occurrence: US)
  Receive Date: 20130109
  Receipt Date: 20130116
  Transmission Date: 20140127
  Serious: Yes (Death, Other)
  Sender: FDA-Public Use
  Company Number: US-PFIZER INC-2013004881

PATIENT
  Age: 56 Year
  Sex: Male

DRUGS (4)
  1. HYDROXYZINE PAMOATE [Suspect]
     Dosage: UNK
  2. DIAZEPAM [Suspect]
     Dosage: UNK
  3. COCAINE [Suspect]
     Dosage: UNK
  4. ACETAMINOPHEN\HYDROCODONE [Suspect]
     Dosage: UNK

REACTIONS (1)
  - Completed suicide [Fatal]
